FAERS Safety Report 6190919-6 (Version None)
Quarter: 2009Q2

REPORT INFORMATION
  Report Type: 
  Country: None (occurrence: None)
  Receive Date: 20090513
  Receipt Date: 20090504
  Transmission Date: 20091009
  Serious: Yes (Hospitalization)
  Sender: FDA-Public Use
  Company Number: 1-18345870

PATIENT
  Age: 60 Year
  Sex: Male

DRUGS (1)
  1. METRONIDAZOLE [Suspect]
     Indication: BRAIN ABSCESS
     Dosage: 2 GRAMS PER DAY, ORAL
     Route: 048

REACTIONS (1)
  - ENCEPHALOPATHY [None]
